FAERS Safety Report 4673294-5 (Version None)
Quarter: 2005Q2

REPORT INFORMATION
  Report Type: 
  Country: None (occurrence: None)
  Receive Date: 20050524
  Receipt Date: 20050524
  Transmission Date: 20051028
  Serious: No
  Sender: FDA-Public Use
  Company Number: None

PATIENT
  Age: 70 Year
  Sex: Male
  Weight: 91 kg

DRUGS (17)
  1. GATIFLOXACIN [Suspect]
     Indication: PNEUMONIA
     Dosage: 200MG DAILY ORAL
     Route: 048
     Dates: start: 20050209, end: 20050211
  2. RESOURCE DIABETIC LIQUID [Concomitant]
  3. CALCIUM CARBONATE [Concomitant]
  4. GEMFIBROZIL [Concomitant]
  5. LOPERAMIDE HCL [Concomitant]
  6. LOVASTATIN [Concomitant]
  7. NEPHRO-VITE [Concomitant]
  8. ASPIRIN [Concomitant]
  9. METOPROLOL TARTRATE [Concomitant]
  10. DOCUSATE NA [Concomitant]
  11. HUMULIN N [Concomitant]
  12. HUMULIN R [Concomitant]
  13. WARFARIN SODIUM [Concomitant]
  14. OMEPRAZOLE [Concomitant]
  15. PAPAIN [Concomitant]
  16. NUTRITION SUPL PROMOD PWDR [Concomitant]
  17. ALBUTEROL SULFATE AND IPRATROPIUM BROMIDE [Concomitant]

REACTIONS (5)
  - CLOSTRIDIUM COLITIS [None]
  - DIARRHOEA [None]
  - FAECAL INCONTINENCE [None]
  - FREQUENT BOWEL MOVEMENTS [None]
  - HAEMATOCHEZIA [None]
